FAERS Safety Report 11426275 (Version 1)
Quarter: 2015Q3

REPORT INFORMATION
  Report Type: Spontaneous
  Country: US (occurrence: US)
  Receive Date: 20150821
  Receipt Date: 20150821
  Transmission Date: 20151125
  Serious: No
  Sender: FDA-Public Use
  Company Number: US-ELI_LILLY_AND_COMPANY-US201305003283

PATIENT
  Sex: Female

DRUGS (1)
  1. HUMULIN N [Suspect]
     Active Substance: INSULIN HUMAN
     Indication: GLUCOSE TOLERANCE IMPAIRED
     Dosage: UNK, QD
     Dates: start: 201303

REACTIONS (4)
  - Blood glucose increased [Unknown]
  - Medication error [Recovered/Resolved]
  - Exposure during pregnancy [Not Recovered/Not Resolved]
  - Weight decreased [Unknown]
